FAERS Safety Report 5978613-5 (Version None)
Quarter: 2008Q4

REPORT INFORMATION
  Report Type: 
  Country: None (occurrence: None)
  Receive Date: 20081204
  Receipt Date: 20080814
  Transmission Date: 20090506
  Serious: No
  Sender: FDA-Public Use
  Company Number: US-BAYER-200813419BCC

PATIENT
  Age: 41 Year
  Sex: Female
  Weight: 66 kg

DRUGS (2)
  1. ALEVE-D SINUS + COLD [Suspect]
     Indication: SINUS CONGESTION
     Dosage: AS USED: 220-440 MG  UNIT DOSE: 220 MG
     Route: 048
     Dates: start: 20080808, end: 20080814
  2. BIRTH CONTROL PILLS (NOS) [Concomitant]

REACTIONS (1)
  - SINUS CONGESTION [None]
